FAERS Safety Report 21462096 (Version 1)
Quarter: 2022Q4

REPORT INFORMATION
  Report Type: Other
  Country: DE (occurrence: None)
  Receive Date: 20221015
  Receipt Date: 20221015
  Transmission Date: 20230112
  Serious: Yes (Death)
  Sender: FDA-Public Use
  Company Number: DE-ROCHE-3200562

PATIENT

DRUGS (8)
  1. TOCILIZUMAB [Suspect]
     Active Substance: TOCILIZUMAB
     Indication: Prophylaxis against transplant rejection
     Dosage: INTRAOPERATIVELY AFTER CONCLUDING THERAPPEUTIC PLASMA EXCHANGE (TPE) BUT PRIOR TO REPERFUSION OF THE
     Route: 065
  2. RITUXIMAB [Suspect]
     Active Substance: RITUXIMAB
     Indication: Prophylaxis against transplant rejection
     Dosage: ONE DAY AFTER THE FIRST IGGAM ADMINISTRATION
     Route: 042
  3. MYCOPHENOLATE MOFETIL [Suspect]
     Active Substance: MYCOPHENOLATE MOFETIL
     Indication: Prophylaxis against transplant rejection
     Route: 065
  4. METHYLPREDNISOLONE [Suspect]
     Active Substance: METHYLPREDNISOLONE
     Indication: Prophylaxis against transplant rejection
     Dosage: INTRAOPERATIVELY PRIOR TO REPERFUSION AS WELL AS INDUCTION THERAPY
     Route: 065
  5. TACROLIMUS [Suspect]
     Active Substance: TACROLIMUS
     Indication: Prophylaxis against transplant rejection
     Route: 065
  6. PREDNISOLONE [Suspect]
     Active Substance: PREDNISOLONE
     Indication: Prophylaxis against transplant rejection
     Route: 065
  7. PENTAGLOBIN [Suspect]
     Active Substance: HUMAN IMMUNOGLOBULIN G
     Indication: Prophylaxis against transplant rejection
     Dosage: 2 G/KG ON POD 4 FOLLOWED BY MONTHLY ADMINISTRATIONS OF 0.5 G/KG UNTIL 6 MONTHS POSTOPERATIVELY OR UN
     Route: 065
  8. THYMOGLOBULINE [Suspect]
     Active Substance: LAPINE T-LYMPHOCYTE IMMUNE GLOBULIN
     Indication: Prophylaxis against transplant rejection
     Dosage: INDUCTION THERAPY
     Route: 065

REACTIONS (2)
  - Sepsis [Fatal]
  - Pneumonia [Fatal]
